FAERS Safety Report 19649554 (Version 4)
Quarter: 2022Q4

REPORT INFORMATION
  Report Type: Spontaneous
  Country: US (occurrence: US)
  Receive Date: 20210802
  Receipt Date: 20221006
  Transmission Date: 20230113
  Serious: No
  Sender: FDA-Public Use
  Company Number: US-PFIZER INC-2021869005

PATIENT
  Age: 74 Year
  Sex: Female

DRUGS (1)
  1. XELJANZ XR [Suspect]
     Active Substance: TOFACITINIB CITRATE
     Indication: Rheumatoid arthritis
     Dosage: UNK

REACTIONS (5)
  - Nasopharyngitis [Unknown]
  - Joint swelling [Unknown]
  - Osteoporosis [Unknown]
  - White blood cell count decreased [Unknown]
  - Full blood count abnormal [Unknown]
